FAERS Safety Report 15635012 (Version 1)
Quarter: 2018Q4

REPORT INFORMATION
  Report Type: Report from Study
  Country: CN (occurrence: CN)
  Receive Date: 20181119
  Receipt Date: 20181119
  Transmission Date: 20190205
  Serious: Yes (Hospitalization)
  Sender: FDA-Public Use
  Company Number: CN-ELI_LILLY_AND_COMPANY-CN201811006259

PATIENT
  Age: 45 Year
  Sex: Male
  Weight: 65 kg

DRUGS (3)
  1. INSULIN, LISPRO [Suspect]
     Active Substance: INSULIN LISPRO
     Indication: TYPE 2 DIABETES MELLITUS
     Dosage: 13U OR 15 U, PRN
     Route: 058
     Dates: start: 2015
  2. INSULIN, LISPRO [Suspect]
     Active Substance: INSULIN LISPRO
     Dosage: 16 U, PRN (15U OR 16 U, EACH MORNING)
     Route: 058
  3. INSULIN, LISPRO [Suspect]
     Active Substance: INSULIN LISPRO
     Dosage: 15 U, PRN (14U OR 15 U, DAILY AT NIGHT)
     Route: 058

REACTIONS (6)
  - Limb discomfort [Recovering/Resolving]
  - Asthenia [Recovering/Resolving]
  - Blood glucose abnormal [Unknown]
  - Urine abnormality [Recovering/Resolving]
  - Protein urine present [Recovering/Resolving]
  - Peripheral swelling [Recovering/Resolving]
